FAERS Safety Report 8322403-5 (Version None)
Quarter: 2012Q1

REPORT INFORMATION
  Report Type: 
  Country: None (occurrence: None)
  Receive Date: 20120315
  Receipt Date: 20110218
  Transmission Date: 20120608
  Serious: No
  Sender: FDA-Public Use
  Company Number: PHHY2011US14473

PATIENT
  Age: 42 Year
  Sex: Female

DRUGS (2)
  1. BACLOFEN [Concomitant]
  2. GILENYA [Suspect]
     Dosage: 0.5 MG, QD, ORAL
     Route: 048

REACTIONS (2)
  - BACK PAIN [None]
  - PAIN IN JAW [None]
